FAERS Safety Report 21547981 (Version 1)
Quarter: 2022Q4

REPORT INFORMATION
  Report Type: Report from Study
  Country: US (occurrence: US)
  Receive Date: 20221103
  Receipt Date: 20221103
  Transmission Date: 20230113
  Serious: No
  Sender: FDA-Public Use
  Company Number: US-ABBVIE-4152049

PATIENT
  Sex: Male

DRUGS (1)
  1. HUMIRA [Suspect]
     Active Substance: ADALIMUMAB
     Indication: Essential hypertension
     Dosage: STRENGTH 40 MG
     Route: 058
     Dates: end: 20220921

REACTIONS (1)
  - COVID-19 [Unknown]
